FAERS Safety Report 7585873-6 (Version None)
Quarter: 2011Q3

REPORT INFORMATION
  Report Type: 
  Country: None (occurrence: None)
  Receive Date: 20110701
  Receipt Date: 20110629
  Transmission Date: 20111222
  Serious: Yes (Other)
  Sender: FDA-Public Use
  Company Number: US-SANOFI-AVENTIS-2010SA063345

PATIENT
  Age: 68 Year
  Sex: Male
  Weight: 91 kg

DRUGS (6)
  1. MULTAQ [Suspect]
     Indication: ATRIAL FIBRILLATION
     Route: 048
     Dates: start: 20101009
  2. WARFARIN SODIUM [Suspect]
     Indication: ATRIAL FIBRILLATION
     Route: 065
     Dates: start: 20101009
  3. QUINAPRIL HCL [Concomitant]
  4. COREG [Concomitant]
  5. CRESTOR [Concomitant]
  6. FENOFIBRATE [Concomitant]

REACTIONS (8)
  - ATRIAL FIBRILLATION [None]
  - HYPOTENSION [None]
  - ASTHENIA [None]
  - BLOOD PRESSURE INCREASED [None]
  - PHOTOSENSITIVITY REACTION [None]
  - HEART RATE DECREASED [None]
  - DIZZINESS [None]
  - CONDITION AGGRAVATED [None]
